FAERS Safety Report 8025277-5 (Version None)
Quarter: 2012Q1

REPORT INFORMATION
  Report Type: 
  Country: None (occurrence: None)
  Receive Date: 20120105
  Receipt Date: 20111227
  Transmission Date: 20120608
  Serious: Yes (Death)
  Sender: FDA-Public Use
  Company Number: US-JNJFOC-20111212384

PATIENT

DRUGS (10)
  1. OXYCODONE HCL [Suspect]
     Indication: ILL-DEFINED DISORDER
  2. DIAZEPAM [Suspect]
     Indication: ILL-DEFINED DISORDER
  3. DIPHENHYDRAMINE HCL [Suspect]
     Indication: ILL-DEFINED DISORDER
  4. HYDROCODONE [Suspect]
     Indication: ILL-DEFINED DISORDER
  5. CLORAZEPATE DIPOTASSIUM [Suspect]
     Indication: ILL-DEFINED DISORDER
  6. ACETAMINOPHEN [Suspect]
  7. ETHANOL [Suspect]
     Indication: ILL-DEFINED DISORDER
  8. PROPOXYPHENE HYDROCHLORIDE [Suspect]
     Indication: ILL-DEFINED DISORDER
  9. ACETAMINOPHEN [Suspect]
     Indication: ILL-DEFINED DISORDER
  10. DIPHENHYDRAMINE HCL [Suspect]

REACTIONS (4)
  - TOXICITY TO VARIOUS AGENTS [None]
  - CARDIAC ARREST [None]
  - RESPIRATORY ARREST [None]
  - COMPLETED SUICIDE [None]
